FAERS Safety Report 4609185-5 (Version None)
Quarter: 2005Q1

REPORT INFORMATION
  Report Type: 
  Country: None (occurrence: None)
  Receive Date: 20050301
  Receipt Date: 20040607
  Transmission Date: 20050727
  Serious: Yes (Disabling)
  Sender: FDA-Public Use
  Company Number: 002#2#2004-00133

PATIENT
  Sex: Male
  Weight: 74.8435 kg

DRUGS (2)
  1. REGLAN [Suspect]
     Indication: GASTROOESOPHAGEAL REFLUX DISEASE
     Dosage: 10MG, 3 IN 1 D; ORAL
     Route: 048
     Dates: start: 20000901, end: 20040202
  2. ESOMEPRAZOLE [Concomitant]

REACTIONS (2)
  - DEPRESSION [None]
  - TARDIVE DYSKINESIA [None]
